FAERS Safety Report 7571407-9 (Version None)
Quarter: 2011Q2

REPORT INFORMATION
  Report Type: 
  Country: None (occurrence: None)
  Receive Date: 20110624
  Receipt Date: 20110614
  Transmission Date: 20111010
  Serious: Yes (Congenital Anomaly, Other)
  Sender: FDA-Public Use
  Company Number: PHHY2010PT89861

PATIENT
  Sex: Female

DRUGS (2)
  1. LISINOPRIL [Suspect]
     Route: 064
  2. METHYLDOPA [Suspect]
     Route: 064

REACTIONS (25)
  - HYPERNATRAEMIA [None]
  - RETROGNATHIA [None]
  - WEIGHT DECREASE NEONATAL [None]
  - HYPERTONIA NEONATAL [None]
  - POLYURIA [None]
  - DYSMORPHISM [None]
  - DELAYED FONTANELLE CLOSURE [None]
  - MICROCEPHALY [None]
  - ENURESIS [None]
  - DYSPNOEA [None]
  - ANGIOTENSIN CONVERTING ENZYME INHIBITOR FOETOPATHY [None]
  - PREMATURE BABY [None]
  - ANAEMIA [None]
  - ATELECTASIS NEONATAL [None]
  - ANURIA [None]
  - POLYDIPSIA [None]
  - BLOOD ANTIDIURETIC HORMONE DECREASED [None]
  - WEIGHT INCREASED [None]
  - INFECTION [None]
  - DRUG EXPOSURE DURING PREGNANCY [None]
  - BLOOD PRESSURE DECREASED [None]
  - RENAL FAILURE [None]
  - CONGENITAL ANOMALY [None]
  - CEREBRAL ATROPHY [None]
  - CONGENITAL NOSE MALFORMATION [None]
